FAERS Safety Report 12646429 (Version 1)
Quarter: 2016Q3

REPORT INFORMATION
  Report Type: Spontaneous
  Country: US (occurrence: US)
  Receive Date: 20160812
  Receipt Date: 20160812
  Transmission Date: 20161109
  Serious: Yes (Other)
  Sender: FDA-Public Use
  Company Number: US-CIPLA LTD.-2016US17166

PATIENT

DRUGS (2)
  1. NEURONTIN [Concomitant]
     Active Substance: GABAPENTIN
     Dosage: UNK, FOR 15 YEARS
     Route: 065
  2. GABAPENTIN. [Suspect]
     Active Substance: GABAPENTIN
     Dosage: 400 MG, QD
     Route: 048
     Dates: start: 201601

REACTIONS (4)
  - Pain [Recovered/Resolved]
  - Product substitution issue [Unknown]
  - Drug intolerance [Unknown]
  - Body height decreased [Unknown]
